FAERS Safety Report 9723222 (Version 2)
Quarter: 2013Q4

REPORT INFORMATION
  Report Type: Spontaneous
  Country: US (occurrence: US)
  Receive Date: 20131202
  Receipt Date: 20131202
  Transmission Date: 20140711
  Serious: Yes (Other)
  Sender: FDA-Public Use
  Company Number: US-GILEAD-2008-0018198

PATIENT
  Age: 48 Year
  Sex: Female
  Weight: 66.68 kg

DRUGS (7)
  1. TRUVADA [Suspect]
     Indication: HIV INFECTION
     Route: 048
     Dates: start: 20080828, end: 20080919
  2. TRUVADA [Suspect]
     Route: 048
     Dates: start: 20080919
  3. LEXIVA [Concomitant]
     Indication: HIV INFECTION
     Dates: start: 20080828
  4. PROVENTIL [Concomitant]
     Indication: ASTHMA
     Route: 055
     Dates: start: 20080915
  5. LEXAPRO [Concomitant]
  6. NYSTATIN [Concomitant]
  7. TRAZODONE [Concomitant]

REACTIONS (1)
  - Renal impairment [Recovering/Resolving]
